FAERS Safety Report 7297980-6 (Version None)
Quarter: 2011Q1

REPORT INFORMATION
  Report Type: 
  Country: None (occurrence: None)
  Receive Date: 20110217
  Receipt Date: 20110207
  Transmission Date: 20110831
  Serious: Yes (Death, Hospitalization)
  Sender: FDA-Public Use
  Company Number: US-JNJFOC-20110202011

PATIENT
  Sex: Female

DRUGS (1)
  1. REMICADE [Suspect]
     Indication: CROHN'S DISEASE
     Route: 042

REACTIONS (5)
  - DRUG INEFFECTIVE [None]
  - DEATH [None]
  - HYPOXIC-ISCHAEMIC ENCEPHALOPATHY [None]
  - SMALL INTESTINAL PERFORATION [None]
  - SEPSIS [None]
